FAERS Safety Report 5193127-0 (Version None)
Quarter: 2006Q4

REPORT INFORMATION
  Report Type: 
  Country: None (occurrence: None)
  Receive Date: 20061228
  Receipt Date: 20060515
  Transmission Date: 20070319
  Serious: No
  Sender: FDA-Public Use
  Company Number: US-GLAXOSMITHKLINE-A0605629A

PATIENT
  Age: 52 Year
  Sex: Male

DRUGS (9)
  1. AVODART [Suspect]
     Indication: BENIGN PROSTATIC HYPERPLASIA
     Dosage: 1CAP PER DAY
     Route: 048
     Dates: start: 20051209
  2. CARDURA [Concomitant]
  3. ACIPHEX [Concomitant]
  4. MULTI-VITAMIN [Concomitant]
  5. VIT C [Concomitant]
  6. VIT B6 [Concomitant]
  7. CALCIUM [Concomitant]
  8. ZYRTEC [Concomitant]
  9. FISH OIL [Concomitant]

REACTIONS (1)
  - DRUG INEFFECTIVE [None]
